FAERS Safety Report 7121332-2 (Version None)
Quarter: 2010Q4

REPORT INFORMATION
  Report Type: 
  Country: None (occurrence: None)
  Receive Date: 20101124
  Receipt Date: 20101110
  Transmission Date: 20110411
  Serious: Yes (Hospitalization, Other)
  Sender: FDA-Public Use
  Company Number: PHHY2010BR76899

PATIENT
  Sex: Female
  Weight: 60 kg

DRUGS (1)
  1. DIOVAN HCT [Suspect]
     Indication: HYPERTENSION
     Dosage: ONE TABLET (160/25 MG) DAILY
     Route: 048

REACTIONS (4)
  - ARRHYTHMIA [None]
  - INFLAMMATION [None]
  - NEOPLASM MALIGNANT [None]
  - THYROID DISORDER [None]
